FAERS Safety Report 19199708 (Version 1)
Quarter: 2021Q2

REPORT INFORMATION
  Report Type: Spontaneous
  Country: US (occurrence: US)
  Receive Date: 20210429
  Receipt Date: 20210429
  Transmission Date: 20210717
  Serious: No
  Sender: FDA-Public Use
  Company Number: US-SA-2021SA138184

PATIENT
  Sex: Female

DRUGS (17)
  1. CLOBETASOL [Concomitant]
     Active Substance: CLOBETASOL
  2. METOPROLOL SUCCINATE. [Concomitant]
     Active Substance: METOPROLOL SUCCINATE
  3. FAMOTIDINE. [Concomitant]
     Active Substance: FAMOTIDINE
  4. FISH OIL [Concomitant]
     Active Substance: FISH OIL
  5. CENTRUM A?ZINC [Concomitant]
     Active Substance: MINERALS\VITAMINS
  6. ALBUTEROL [SALBUTAMOL] [Concomitant]
     Active Substance: ALBUTEROL
  7. DICLOFENAC [Concomitant]
     Active Substance: DICLOFENAC
  8. LORATADINE. [Concomitant]
     Active Substance: LORATADINE
  9. DESOXIMETASONE. [Concomitant]
     Active Substance: DESOXIMETASONE
  10. LOSARTAN. [Concomitant]
     Active Substance: LOSARTAN
  11. RESTASIS [Concomitant]
     Active Substance: CYCLOSPORINE
  12. DUPIXENT [Suspect]
     Active Substance: DUPILUMAB
     Indication: DERMATITIS ATOPIC
     Dosage: 300 MG, QOW
     Route: 058
  13. VITAMIN B12 [Concomitant]
     Active Substance: CYANOCOBALAMIN
  14. ZTLIDO [Concomitant]
     Active Substance: LIDOCAINE
  15. KETOCONAZOLE. [Concomitant]
     Active Substance: KETOCONAZOLE
  16. METRONIDAZOLE. [Concomitant]
     Active Substance: METRONIDAZOLE
  17. AZELAIC ACID. [Concomitant]
     Active Substance: AZELAIC ACID

REACTIONS (2)
  - Pruritus [Unknown]
  - Dyspnoea [Unknown]
